FAERS Safety Report 5700978-X (Version None)
Quarter: 2008Q2

REPORT INFORMATION
  Report Type: 
  Country: None (occurrence: None)
  Receive Date: 20080410
  Receipt Date: 20080331
  Transmission Date: 20081010
  Serious: Yes (Death)
  Sender: FDA-Public Use
  Company Number: NO-JNJFOC-20080400190

PATIENT
  Age: 66 Year
  Sex: Male

DRUGS (15)
  1. HALOPERIDOL [Suspect]
     Indication: ACUTE PSYCHOSIS
     Route: 042
  2. MIDAZOLAM HCL [Suspect]
     Indication: ACUTE PSYCHOSIS
     Route: 042
  3. MORPHINE [Suspect]
     Route: 042
  4. MORPHINE [Suspect]
     Route: 042
  5. MORPHINE [Suspect]
     Indication: POST PROCEDURAL COMPLICATION
     Route: 042
  6. FLUMAZENIL [Suspect]
     Route: 042
  7. FLUMAZENIL [Suspect]
     Indication: COMA
     Route: 042
  8. DIAZEPAM [Suspect]
     Indication: DRUG USE FOR UNKNOWN INDICATION
     Route: 042
  9. KETOGAN. [Concomitant]
  10. KETOGAN. [Concomitant]
  11. KETOGAN. [Concomitant]
  12. FENTANYL [Concomitant]
  13. MARCAINE [Concomitant]
  14. DIGITOXIN INJ [Concomitant]
  15. ALDOMET [Concomitant]

REACTIONS (4)
  - COMA [None]
  - HYPOXIA [None]
  - PULMONARY EMBOLISM [None]
  - SUDDEN DEATH [None]
